FAERS Safety Report 9686627 (Version 2)
Quarter: 2013Q4

REPORT INFORMATION
  Report Type: Spontaneous
  Country: ES (occurrence: ES)
  Receive Date: 20131113
  Receipt Date: 20131230
  Transmission Date: 20140711
  Serious: Yes (Death, Hospitalization)
  Sender: FDA-Public Use
  Company Number: ES-GLAXOSMITHKLINE-B0942117A

PATIENT
  Age: 29 Year
  Sex: Male

DRUGS (5)
  1. TROBALT [Suspect]
     Indication: EPILEPSY
     Route: 048
  2. DEPAKINE [Concomitant]
     Dosage: 700MG SEE DOSAGE TEXT
     Route: 065
  3. TRILEPTAL [Concomitant]
     Dosage: 750MG TWICE PER DAY
     Route: 065
  4. VIMPAT [Concomitant]
     Route: 065
  5. RIVOTRIL [Concomitant]
     Route: 065

REACTIONS (9)
  - Convulsion [Not Recovered/Not Resolved]
  - Cardiac arrest [Fatal]
  - Coma [Unknown]
  - Nervousness [Unknown]
  - Muscle tightness [Unknown]
  - Speech disorder [Unknown]
  - Dissociation [Unknown]
  - Grand mal convulsion [Unknown]
  - Restlessness [Unknown]
